FAERS Safety Report 11194301 (Version 3)
Quarter: 2015Q3

REPORT INFORMATION
  Report Type: Report from Study
  Country: JP (occurrence: JP)
  Receive Date: 20150616
  Receipt Date: 20150918
  Transmission Date: 20151125
  Serious: Yes (Congenital Anomaly, Other)
  Sender: FDA-Public Use
  Company Number: JP-ABBVIE-15P-087-1409555-00

PATIENT
  Age: 34 Year
  Sex: Female
  Weight: 47.2 kg

DRUGS (9)
  1. BETAMETHASONE. [Concomitant]
     Active Substance: BETAMETHASONE
     Indication: PRODUCT USED FOR UNKNOWN INDICATION
     Route: 054
     Dates: start: 20140922
  2. TIQUIZIUM BROMIDE [Concomitant]
     Active Substance: TIQUIZIUM BROMIDE
     Indication: PRODUCT USED FOR UNKNOWN INDICATION
     Route: 048
     Dates: start: 20141027
  3. RABEPRAZOLE SODIUM. [Concomitant]
     Active Substance: RABEPRAZOLE SODIUM
     Indication: COLITIS ULCERATIVE
     Route: 048
     Dates: start: 20141215, end: 20150302
  4. FERROUS SULFATE [Concomitant]
     Active Substance: FERROUS SULFATE\FERROUS SULFATE, DRIED
     Indication: ANAEMIA
     Route: 048
     Dates: start: 20141215, end: 20150123
  5. ETIZOLAM [Concomitant]
     Active Substance: ETIZOLAM
     Indication: PRODUCT USED FOR UNKNOWN INDICATION
     Route: 048
     Dates: start: 20140426, end: 201407
  6. LOXOPROFEN SODIUM KOKANDO [Concomitant]
     Indication: PRODUCT USED FOR UNKNOWN INDICATION
     Route: 062
     Dates: start: 20140707
  7. HUMIRA [Suspect]
     Active Substance: ADALIMUMAB
     Indication: COLITIS ULCERATIVE
     Route: 058
     Dates: start: 20131224
  8. PREDNISOLONE. [Concomitant]
     Active Substance: PREDNISOLONE
     Indication: COLITIS ULCERATIVE
     Route: 048
     Dates: start: 20141215, end: 20150302
  9. SALAZOSULFAPYRADINE [Concomitant]
     Indication: PRODUCT USED FOR UNKNOWN INDICATION
     Route: 048
     Dates: start: 20140426, end: 201407

REACTIONS (5)
  - Umbilical cord abnormality [Unknown]
  - Foetal hypokinesia [Unknown]
  - Stillbirth [Unknown]
  - Threatened labour [Unknown]
  - Exposure during pregnancy [Unknown]

NARRATIVE: CASE EVENT DATE: 20150119
